FAERS Safety Report 17137771 (Version 3)
Quarter: 2020Q1

REPORT INFORMATION
  Report Type: Report from Study
  Country: None (occurrence: US)
  Receive Date: 20191211
  Receipt Date: 20200103
  Transmission Date: 20200409
  Serious: Yes (Hospitalization, Other)
  Sender: FDA-Public Use
  Company Number: US-ABBVIE-19K-163-3162533-00

PATIENT
  Age: 80 Year
  Sex: Male
  Weight: 121 kg

DRUGS (1)
  1. IMBRUVICA [Suspect]
     Active Substance: IBRUTINIB
     Indication: CHRONIC LYMPHOCYTIC LEUKAEMIA
     Dosage: 420 MG, QD
     Route: 065
     Dates: start: 20170825

REACTIONS (1)
  - Limb injury [Recovering/Resolving]

NARRATIVE: CASE EVENT DATE: 20190919
